FAERS Safety Report 22258770 (Version 1)
Quarter: 2023Q2

REPORT INFORMATION
  Report Type: Spontaneous
  Country: BR (occurrence: BR)
  Receive Date: 20230427
  Receipt Date: 20230427
  Transmission Date: 20230722
  Serious: Yes (Hospitalization, Other)
  Sender: FDA-Public Use
  Company Number: BR-SA-SAC20230327001454

PATIENT
  Sex: Male

DRUGS (7)
  1. DEXAMETHASONE [Suspect]
     Active Substance: DEXAMETHASONE
     Indication: Plasmacytoma
     Dosage: UNK
     Route: 065
  2. ISATUXIMAB [Suspect]
     Active Substance: ISATUXIMAB
     Indication: Plasmacytoma
     Dosage: UNKNOWN
     Route: 065
  3. BORTEZOMIB [Suspect]
     Active Substance: BORTEZOMIB
     Dosage: UNK
  4. CYCLOPHOSPHAMIDE [Suspect]
     Active Substance: CYCLOPHOSPHAMIDE
     Dosage: UNK
  5. PLERIXAFOR [Concomitant]
     Active Substance: PLERIXAFOR
  6. DARATUMUMAB [Concomitant]
     Active Substance: DARATUMUMAB
  7. CARFILZOMIB [Concomitant]
     Active Substance: CARFILZOMIB
     Indication: Plasmacytoma

REACTIONS (9)
  - Plasmacytoma [Unknown]
  - Plasma cell leukaemia [Unknown]
  - Renal failure [Unknown]
  - Pancytopenia [Unknown]
  - Neutropenia [Unknown]
  - Pain [Unknown]
  - Rib fracture [Unknown]
  - Anaemia [Unknown]
  - Drug ineffective [Unknown]

NARRATIVE: CASE EVENT DATE: 20220901
